FAERS Safety Report 7579712-7 (Version None)
Quarter: 2011Q2

REPORT INFORMATION
  Report Type: 
  Country: None (occurrence: None)
  Receive Date: 20110629
  Receipt Date: 20110620
  Transmission Date: 20111010
  Serious: Yes (Hospitalization)
  Sender: FDA-Public Use
  Company Number: US-ASTELLAS-2011US003195

PATIENT
  Age: 54 Year
  Sex: Female

DRUGS (6)
  1. PROGRAF [Suspect]
     Dosage: 3 MG AM, 2 MG PM
     Route: 048
  2. METHYLPREDNISOLONE [Concomitant]
     Indication: LIVER TRANSPLANT
     Dosage: 500 MG, TOTAL DOSE
     Route: 042
  3. METHYLPREDNISOLONE [Concomitant]
     Dosage: 20 MG, UID/QD
     Route: 042
  4. ANTI-THYMOCYTE GLOBULIN NOS [Concomitant]
     Indication: LIVER TRANSPLANT
     Dosage: 100 MG, TOTAL DOSE
     Route: 042
  5. MYCOPHENOLATE MEFETIL [Concomitant]
     Indication: LIVER TRANSPLANT
     Dosage: 1000 MG, BID
     Route: 041
  6. PROGRAF [Suspect]
     Indication: LIVER TRANSPLANT
     Dosage: 3 MG, BID
     Route: 048

REACTIONS (3)
  - IMMUNOSUPPRESSANT DRUG LEVEL INCREASED [None]
  - ENTEROCOCCAL BACTERAEMIA [None]
  - OSMOTIC DEMYELINATION SYNDROME [None]
